FAERS Safety Report 25145377 (Version 4)
Quarter: 2025Q2

REPORT INFORMATION
  Report Type: Spontaneous
  Country: US (occurrence: US)
  Receive Date: 20250401
  Receipt Date: 20250624
  Transmission Date: 20250717
  Serious: No
  Sender: SANOFI AVENTIS
  Company Number: US-SA-2025SA091788

PATIENT
  Age: 68 Year
  Sex: Male

DRUGS (1)
  1. DUPIXENT [Suspect]
     Active Substance: DUPILUMAB
     Dosage: 300 MG, QOW
     Route: 058

REACTIONS (11)
  - Foreign body sensation in eyes [Unknown]
  - Dry skin [Unknown]
  - Rash pruritic [Unknown]
  - Skin discolouration [Unknown]
  - Skin burning sensation [Unknown]
  - Lacrimation increased [Unknown]
  - Herpes zoster [Unknown]
  - Gastritis [Unknown]
  - Arthralgia [Unknown]
  - Dermatitis atopic [Unknown]
  - Erythema [Unknown]

NARRATIVE: CASE EVENT DATE: 20250101
